FAERS Safety Report 21410447 (Version 1)
Quarter: 2022Q4

REPORT INFORMATION
  Report Type: Spontaneous
  Country: US (occurrence: US)
  Receive Date: 20221005
  Receipt Date: 20221005
  Transmission Date: 20230113
  Serious: Yes (Other)
  Sender: FDA-Public Use
  Company Number: US-SA-SAC20221004000720

PATIENT
  Age: 38 Year
  Sex: Male

DRUGS (1)
  1. DUPIXENT [Suspect]
     Active Substance: DUPILUMAB
     Dosage: 200 MG, OTHER
     Route: 058

REACTIONS (5)
  - Autoimmune disorder [Unknown]
  - Injection site pain [Unknown]
  - Eczema [Unknown]
  - Asthma [Not Recovered/Not Resolved]
  - Drug ineffective [Unknown]
